FAERS Safety Report 8971555 (Version 1)
Quarter: 2012Q4

REPORT INFORMATION
  Report Type: 
  Country: GB (occurrence: US)
  Receive Date: 20121217
  Receipt Date: 20121217
  Transmission Date: 20130627
  Serious: Yes (Death)
  Sender: FDA-Public Use
  Company Number: US-MERCK-1212USA004538

PATIENT
  Age: 48 Year
  Sex: Male
  Weight: 69.9 kg

DRUGS (9)
  1. TEMODAR [Suspect]
     Indication: GLIOBLASTOMA
     Dosage: Administered 1 - 5 days of each cycle
     Route: 065
     Dates: start: 20080423, end: 20090602
  2. BEVACIZUMAB [Suspect]
     Indication: GLIOBLASTOMA
     Dosage: 699 mg, qow
     Route: 042
     Dates: start: 20080423, end: 20090602
  3. BEVACIZUMAB [Suspect]
     Dosage: UNK
     Route: 042
  4. IRINOTECAN HYDROCHLORIDE [Suspect]
     Indication: GLIOBLASTOMA
     Dosage: 235 mg, qow
     Route: 042
     Dates: start: 20080423, end: 20090602
  5. VITAMINS (UNSPECIFIED) [Concomitant]
  6. ASCORBIC ACID [Concomitant]
  7. FUCUS [Concomitant]
  8. SELENIUM (UNSPECIFIED) [Concomitant]
  9. OMEGA-3 [Concomitant]

REACTIONS (1)
  - Acute myeloid leukaemia [Fatal]
